FAERS Safety Report 17418010 (Version 4)
Quarter: 2020Q3

REPORT INFORMATION
  Report Type: Spontaneous
  Country: US (occurrence: US)
  Receive Date: 20200213
  Receipt Date: 20200715
  Transmission Date: 20201102
  Serious: Yes (Hospitalization)
  Sender: FDA-Public Use
  Company Number: US-ACTELION-A-US2020-201374

PATIENT
  Age: 79 Year
  Sex: Female

DRUGS (2)
  1. OPSUMIT [Suspect]
     Active Substance: MACITENTAN
     Indication: PULMONARY ARTERIAL HYPERTENSION
     Dosage: 10 MG, QD
     Route: 048
     Dates: start: 20191002, end: 20200701
  2. SILDENAFIL. [Concomitant]
     Active Substance: SILDENAFIL
     Dosage: 20 MG, TID
     Dates: start: 20190417

REACTIONS (7)
  - Dyspepsia [Unknown]
  - Dyspnoea [Unknown]
  - Blood pressure increased [Unknown]
  - Arrhythmia [Unknown]
  - Nausea [Unknown]
  - Dialysis [Unknown]
  - Renal failure [Unknown]

NARRATIVE: CASE EVENT DATE: 20200701
